FAERS Safety Report 4837115-X (Version None)
Quarter: 2005Q4

REPORT INFORMATION
  Report Type: 
  Country: None (occurrence: None)
  Receive Date: 20051122
  Receipt Date: 20051109
  Transmission Date: 20060501
  Serious: Yes (Other)
  Sender: FDA-Public Use
  Company Number: 2004112011

PATIENT
  Sex: Female
  Weight: 59.8748 kg

DRUGS (4)
  1. CELEBREX [Suspect]
     Indication: ARTHRITIS
     Dosage: 200 MG ORAL
     Route: 048
     Dates: end: 20051001
  2. BEXTRA [Suspect]
  3. TYLENOL [Concomitant]
  4. VITAMINS (VITAMIINS) [Concomitant]

REACTIONS (6)
  - ANGINA PECTORIS [None]
  - BODY HEIGHT DECREASED [None]
  - DYSPEPSIA [None]
  - NEOPLASM MALIGNANT [None]
  - OESOPHAGEAL DISORDER [None]
  - RENAL SURGERY [None]
